FAERS Safety Report 9852284 (Version 2)
Quarter: 2014Q2

REPORT INFORMATION
  Report Type: Spontaneous
  Country: US (occurrence: None)
  Receive Date: 20140127
  Receipt Date: 20140404
  Transmission Date: 20141212
  Serious: Yes (Other)
  Sender: FDA-Public Use
  Company Number: 2014-US-000441

PATIENT
  Age: 79 Year
  Sex: Female
  Weight: 54 kg

DRUGS (13)
  1. XYREM (SODIUM OXYBATE) ORAL SOLUTION, 500 MG/ML [Suspect]
     Indication: NARCOLEPSY
     Dates: start: 20140112, end: 20140112
  2. XYREM (SODIUM OXYBATE) ORAL SOLUTION, 500 MG/ML [Suspect]
     Indication: CATAPLEXY
     Dates: start: 20140112, end: 20140112
  3. ASA [Concomitant]
  4. DOXAZOSIN (DOXAZOSIN MESILATE) [Concomitant]
  5. LABETALO (LABETALO HYDROCHLORIDE) [Concomitant]
  6. LEVOTHYROXINE (LEVOTHYROXINE) [Concomitant]
  7. PREDNISONE (PREDNISONE) [Concomitant]
  8. PREVACID (LANSOPRAZOLE) [Concomitant]
  9. AMITRIPTYLINE (AMITRIPTYLINE) [Concomitant]
  10. CLONIDINE (CLONIDINE HYDROCHLORIDE) [Concomitant]
  11. ESTRADIOL (ESTRADIOL) [Concomitant]
  12. METANX (CALCIUM MEFOLINATE, PYRIDOXINE HYDROCHLORIDE VITAMIL B12) [Concomitant]
  13. ROPINIROLE (ROPINIROLE) [Concomitant]

REACTIONS (8)
  - Eye movement disorder [None]
  - Speech disorder [None]
  - Muscle twitching [None]
  - Dyskinesia [None]
  - Dyspnoea [None]
  - Dyskinesia [None]
  - Confusional state [None]
  - Dyspnoea [None]
